FAERS Safety Report 4979537-2 (Version None)
Quarter: 2006Q2

REPORT INFORMATION
  Report Type: 
  Country: None (occurrence: None)
  Receive Date: 20060421
  Receipt Date: 20060411
  Transmission Date: 20061013
  Serious: Yes (Hospitalization)
  Sender: FDA-Public Use
  Company Number: 2006AC00736

PATIENT

DRUGS (1)
  1. FASLODEX [Suspect]
     Indication: BREAST CANCER
     Dosage: 2 TIMES 5 ML INJECTION
     Route: 030

REACTIONS (2)
  - BRONCHOPNEUMONIA [None]
  - INTERSTITIAL LUNG DISEASE [None]
